FAERS Safety Report 8406396-8 (Version None)
Quarter: 2012Q2

REPORT INFORMATION
  Report Type: 
  Country: None (occurrence: None)
  Receive Date: 20120604
  Receipt Date: 20120523
  Transmission Date: 20120825
  Serious: Yes (Hospitalization, Other)
  Sender: FDA-Public Use
  Company Number: CA-BRISTOL-MYERS SQUIBB COMPANY-15902497

PATIENT
  Age: 58 Year
  Sex: Female

DRUGS (10)
  1. METHOTREXATE [Concomitant]
     Route: 058
  2. LYRICA [Concomitant]
  3. ORENCIA [Suspect]
     Indication: RHEUMATOID ARTHRITIS
     Dosage: LAST INFUS ON 05JUL11,13MAR2012(500MG)Q4H;11APR12 LOT:1G64569 EXP:MA14;1L66305,EXP:SEP14 INF:12
     Route: 042
     Dates: start: 20110621
  4. PLAQUENIL [Concomitant]
  5. PANTOPRAZOLE SODIUM [Concomitant]
  6. VENLAFAXINE HCL [Concomitant]
  7. DOMPERIDONE [Concomitant]
  8. CALCIUM + VITAMIN D [Concomitant]
  9. TRAZODONE HCL [Concomitant]
  10. DITROPAN [Concomitant]

REACTIONS (8)
  - HYPERCALCAEMIA [None]
  - VOMITING [None]
  - RHEUMATOID ARTHRITIS [None]
  - DIZZINESS [None]
  - BALANCE DISORDER [None]
  - RENAL MASS [None]
  - FATIGUE [None]
  - LUNG CANCER METASTATIC [None]
